FAERS Safety Report 4843448-3 (Version None)
Quarter: 2005Q4

REPORT INFORMATION
  Report Type: 
  Country: None (occurrence: None)
  Receive Date: 20051027
  Receipt Date: 20051027
  Transmission Date: 20060501
  Serious: Yes (Life-Threatening, Hospitalization, Other)
  Sender: FDA-Public Use
  Company Number: HQWYE891910DEC04

PATIENT
  Age: 76 Year
  Sex: Female
  Weight: 71.73 kg

DRUGS (7)
  1. PREMARIN [Suspect]
     Indication: ARTIFICIAL MENOPAUSE
     Dosage: SEE IMAGE
     Dates: start: 19680101, end: 20030801
  2. PREMARIN [Suspect]
     Indication: MENOPAUSAL SYMPTOMS
     Dosage: SEE IMAGE
     Dates: start: 19680101, end: 20030801
  3. PREMARIN [Suspect]
     Indication: ARTIFICIAL MENOPAUSE
     Dosage: SEE IMAGE
     Dates: start: 20040201, end: 20041201
  4. PREMARIN [Suspect]
     Indication: MENOPAUSAL SYMPTOMS
     Dosage: SEE IMAGE
     Dates: start: 20040201, end: 20041201
  5. PREMARIN [Suspect]
     Indication: ARTIFICIAL MENOPAUSE
     Dosage: SEE IMAGE
     Dates: start: 20041201
  6. PREMARIN [Suspect]
     Indication: MENOPAUSAL SYMPTOMS
     Dosage: SEE IMAGE
     Dates: start: 20041201
  7. LOPID [Concomitant]

REACTIONS (1)
  - ISCHAEMIC STROKE [None]
